FAERS Safety Report 18633083 (Version 3)
Quarter: 2021Q1

REPORT INFORMATION
  Report Type: Report from Study
  Country: CA (occurrence: CA)
  Receive Date: 20201218
  Receipt Date: 20210215
  Transmission Date: 20210419
  Serious: Yes (Other)
  Sender: FDA-Public Use
  Company Number: CA-JNJFOC-20201128028

PATIENT
  Age: 65 Year
  Sex: Female
  Weight: 89.5 kg

DRUGS (3)
  1. STELARA [Suspect]
     Active Substance: USTEKINUMAB
     Indication: CROHN^S DISEASE
     Route: 058
     Dates: start: 20190726
  2. STELARA [Suspect]
     Active Substance: USTEKINUMAB
     Route: 058
     Dates: start: 20191009
  3. STELARA [Suspect]
     Active Substance: USTEKINUMAB
     Dosage: ON 14?DEC?2020, THE PATIENT RECEIVED 10TH INJECTION WITH THE DOSE OF 90 MG.
     Route: 058
     Dates: start: 20201214

REACTIONS (6)
  - Off label use [Unknown]
  - Hypoaesthesia [Recovering/Resolving]
  - Pain [Recovering/Resolving]
  - Gastroenteritis [Not Recovered/Not Resolved]
  - Product use issue [Unknown]
  - Crohn^s disease [Not Recovered/Not Resolved]

NARRATIVE: CASE EVENT DATE: 202012
